FAERS Safety Report 19493941 (Version 2)
Quarter: 2021Q3

REPORT INFORMATION
  Report Type: Spontaneous
  Country: US (occurrence: US)
  Receive Date: 20210705
  Receipt Date: 20210904
  Transmission Date: 20211014
  Serious: Yes (Death, Other)
  Sender: FDA-Public Use
  Company Number: US-TAKEDA-2021TUS041475

PATIENT
  Age: 61 Year
  Sex: Male
  Weight: 102 kg

DRUGS (23)
  1. GATTEX [Suspect]
     Active Substance: TEDUGLUTIDE\WATER
     Indication: SHORT-BOWEL SYNDROME
     Dosage: 2.57 MILLIGRAM, QD
     Route: 058
  2. NEURONTIN [Concomitant]
     Active Substance: GABAPENTIN
  3. PERCOCET [Concomitant]
     Active Substance: ACETAMINOPHEN\OXYCODONE HYDROCHLORIDE
  4. PHENERGAN [Concomitant]
     Active Substance: PROMETHAZINE HYDROCHLORIDE
  5. GATTEX [Suspect]
     Active Substance: TEDUGLUTIDE\WATER
     Indication: SHORT-BOWEL SYNDROME
     Dosage: 2.57 MILLIGRAM, QD
     Route: 058
  6. CYMBALTA [Concomitant]
     Active Substance: DULOXETINE HYDROCHLORIDE
  7. PROTONIX [Concomitant]
     Active Substance: PANTOPRAZOLE SODIUM
  8. GATTEX [Suspect]
     Active Substance: TEDUGLUTIDE\WATER
     Indication: SHORT-BOWEL SYNDROME
     Dosage: 2.57 MILLIGRAM, QD
     Route: 058
  9. GATTEX [Suspect]
     Active Substance: TEDUGLUTIDE\WATER
     Indication: SHORT-BOWEL SYNDROME
     Dosage: 2.57 MILLIGRAM, QD
     Route: 058
  10. CLOPIDOGREL [Concomitant]
     Active Substance: CLOPIDOGREL BISULFATE
  11. CODEINE [Concomitant]
     Active Substance: CODEINE
  12. LOMOTIL [Concomitant]
     Active Substance: ATROPINE SULFATE\DIPHENOXYLATE HYDROCHLORIDE
  13. ZOFRAN [Concomitant]
     Active Substance: ONDANSETRON HYDROCHLORIDE
  14. ANDROGEL [Concomitant]
     Active Substance: TESTOSTERONE
  15. GATTEX [Suspect]
     Active Substance: TEDUGLUTIDE\WATER
     Dosage: UNK
     Route: 065
     Dates: start: 201709
  16. MYCOSTATIN [Concomitant]
     Active Substance: NYSTATIN
  17. GATTEX [Suspect]
     Active Substance: TEDUGLUTIDE\WATER
     Dosage: UNK
     Route: 065
     Dates: start: 201709
  18. GATTEX [Suspect]
     Active Substance: TEDUGLUTIDE\WATER
     Dosage: UNK
     Route: 065
     Dates: start: 201709
  19. CARVEDILOL. [Concomitant]
     Active Substance: CARVEDILOL
  20. GATTEX [Suspect]
     Active Substance: TEDUGLUTIDE\WATER
     Dosage: UNK
     Route: 065
     Dates: start: 201709
  21. COENZYME Q10 [Concomitant]
     Active Substance: DIETARY SUPPLEMENT\UBIDECARENONE
  22. FERROUS SULFATE. [Concomitant]
     Active Substance: FERROUS SULFATE
  23. MAG?OX [Concomitant]
     Active Substance: MAGNESIUM OXIDE

REACTIONS (3)
  - Lipase increased [Unknown]
  - Serum ferritin increased [Unknown]
  - Death [Fatal]

NARRATIVE: CASE EVENT DATE: 20190723
